FAERS Safety Report 10124162 (Version 2)
Quarter: 2015Q1

REPORT INFORMATION
  Report Type: Other
  Country: US (occurrence: US)
  Receive Date: 20140427
  Receipt Date: 20150210
  Transmission Date: 20150720
  Serious: Yes (Hospitalization, Other)
  Sender: FDA-Public Use
  Company Number: US-GSKPPD-2014GSK026331

PATIENT
  Age: 41 Year
  Sex: Female

DRUGS (6)
  1. LOPRESSOR [Concomitant]
     Active Substance: METOPROLOL TARTRATE
  2. DIOVAN [Concomitant]
     Active Substance: VALSARTAN
  3. ISORDIL [Concomitant]
     Active Substance: ISOSORBIDE DINITRATE
  4. LASIX [Concomitant]
     Active Substance: FUROSEMIDE
  5. COUMADIN [Concomitant]
     Active Substance: WARFARIN SODIUM
  6. AVANDIA [Suspect]
     Active Substance: ROSIGLITAZONE MALEATE
     Indication: DIABETES MELLITUS
     Dosage: AVANDIA WAS NOT LISTED AMONG THE PATIENTS RECORDS REVIEWED.
     Route: 048

REACTIONS (2)
  - Cardiac failure congestive [Recovered/Resolved]
  - Myocardial infarction [Unknown]

NARRATIVE: CASE EVENT DATE: 20060731
